FAERS Safety Report 4354270-9 (Version None)
Quarter: 2004Q2

REPORT INFORMATION
  Report Type: 
  Country: None (occurrence: None)
  Receive Date: 20040503
  Receipt Date: 20040427
  Transmission Date: 20050107
  Serious: Yes (Death)
  Sender: FDA-Public Use
  Company Number: F01200400915

PATIENT

DRUGS (3)
  1. OXALIPLATIN) - SOLUTION - 460 MG/M2 [Suspect]
     Indication: COLORECTAL CANCER METASTATIC
     Dosage: 460 MG/M2 INTRAPERITONEAL
     Route: 033
  2. FLUOROURACIL [Suspect]
     Dosage: A FEW MINUTES
     Route: 042
  3. LEUCOVORIN CALCIUM [Suspect]
     Dosage: A FEW MINUTES
     Route: 042

REACTIONS (2)
  - HAEMORRHAGE INTRACRANIAL [None]
  - THROMBOCYTOPENIA [None]
